FAERS Safety Report 9062467 (Version 3)
Quarter: 2013Q1

REPORT INFORMATION
  Report Type: Report from Study
  Country: JP (occurrence: JP)
  Receive Date: 20130129
  Receipt Date: 20130325
  Transmission Date: 20140127
  Serious: Yes (Hospitalization)
  Sender: FDA-Public Use
  Company Number: JP-EISAI INC-E2020-11894-CLI-JP

PATIENT
  Age: 80 Year
  Sex: Male
  Weight: 69 kg

DRUGS (7)
  1. DONEPEZIL [Suspect]
     Indication: PARKINSON^S DISEASE
     Dosage: DOUBLE-BLIND
     Route: 048
     Dates: start: 20120128, end: 20120210
  2. DONEPEZIL [Suspect]
     Dosage: DOUBLE-BLIND
     Route: 048
     Dates: start: 20120211, end: 20130116
  3. MADOPAR [Concomitant]
     Indication: PARKINSON^S DISEASE
     Route: 048
  4. BI-SIFROL [Concomitant]
     Indication: PARKINSON^S DISEASE
     Route: 048
  5. SCOPOLIA EXTRACT POWDER [Concomitant]
     Indication: SALIVARY HYPERSECRETION
     Route: 048
  6. MAGLAX [Concomitant]
     Indication: CONSTIPATION
     Route: 048
     Dates: start: 20120921
  7. BERIZYM [Concomitant]
     Indication: DYSPEPSIA
     Route: 048
     Dates: start: 20120704

REACTIONS (1)
  - Prostate cancer [Not Recovered/Not Resolved]
